FAERS Safety Report 9379692 (Version 1)
Quarter: 2013Q3

REPORT INFORMATION
  Report Type: Spontaneous
  Country: US (occurrence: US)
  Receive Date: 20130702
  Receipt Date: 20130702
  Transmission Date: 20140515
  Serious: No
  Sender: FDA-Public Use
  Company Number: US-009507513-1307USA000391

PATIENT
  Sex: Female

DRUGS (2)
  1. DR. SCHOLL^S ONE STEP CORN REMOVERS [Suspect]
     Indication: HYPERKERATOSIS
     Dosage: UNK, UNKNOWN
     Route: 061
  2. DR. SCHOLL^S ONE STEP CORN REMOVERS [Suspect]
     Indication: BLISTER

REACTIONS (1)
  - Application site discolouration [Not Recovered/Not Resolved]
